FAERS Safety Report 9078464 (Version 1)
Quarter: 2013Q1

REPORT INFORMATION
  Report Type: Report from Study
  Country: US (occurrence: US)
  Receive Date: 20130130
  Receipt Date: 20130130
  Transmission Date: 20140127
  Serious: Yes (Hospitalization, Other)
  Sender: FDA-Public Use
  Company Number: US-ABBOTT-12P-163-0955340-00

PATIENT
  Sex: Female
  Weight: 111.23 kg

DRUGS (2)
  1. HUMIRA 40 MG/0.8 ML PEN [Suspect]
     Indication: ANKYLOSING SPONDYLITIS
     Route: 058
     Dates: start: 2010, end: 2011
  2. HUMIRA 40 MG/0.8 ML PEN [Suspect]
     Route: 058
     Dates: start: 201204, end: 201206

REACTIONS (6)
  - Neoplasm malignant [Unknown]
  - Dehydration [Unknown]
  - Bronchitis [Unknown]
  - Vertigo [Unknown]
  - Migraine [Unknown]
  - Transient ischaemic attack [Unknown]
